FAERS Safety Report 23092717 (Version 2)
Quarter: 2024Q3

REPORT INFORMATION
  Report Type: Report from Study
  Country: US (occurrence: US)
  Receive Date: 20231021
  Receipt Date: 20240806
  Transmission Date: 20241016
  Serious: No
  Sender: SANOFI AVENTIS
  Company Number: US-SANOFI-01808584

PATIENT
  Age: 4 Year
  Sex: Male

DRUGS (1)
  1. DUPILUMAB [Suspect]
     Active Substance: DUPILUMAB
     Indication: Dermatitis atopic
     Dosage: UNK
     Route: 058
     Dates: start: 20230426

REACTIONS (4)
  - Injection site swelling [Recovered/Resolved]
  - Impaired quality of life [Unknown]
  - Intentional product use issue [Unknown]
  - Drug ineffective [Unknown]
